FAERS Safety Report 5951037-2 (Version None)
Quarter: 2008Q4

REPORT INFORMATION
  Report Type: 
  Country: None (occurrence: None)
  Receive Date: 20081112
  Receipt Date: 20081104
  Transmission Date: 20090506
  Serious: Yes (Other)
  Sender: FDA-Public Use
  Company Number: GB-GILEAD-2008-0018911

PATIENT
  Age: 53 Year
  Sex: Female
  Weight: 44 kg

DRUGS (3)
  1. VIREAD [Suspect]
     Indication: DRUG USE FOR UNKNOWN INDICATION
     Route: 048
     Dates: start: 20051001, end: 20080901
  2. EMTRIVA [Suspect]
     Route: 048
     Dates: start: 20051001
  3. EFAVIRENZ [Concomitant]
     Route: 048
     Dates: start: 20051001

REACTIONS (8)
  - ANOREXIA [None]
  - ASTHENIA [None]
  - BLOOD CREATININE INCREASED [None]
  - FATIGUE [None]
  - GLOMERULAR FILTRATION RATE DECREASED [None]
  - LETHARGY [None]
  - NAUSEA [None]
  - VOMITING [None]
